FAERS Safety Report 9073410 (Version 1)
Quarter: 2013Q1

REPORT INFORMATION
  Report Type: Report from Study
  Country: US (occurrence: US)
  Receive Date: 20130129
  Receipt Date: 20130129
  Transmission Date: 20140127
  Serious: No
  Sender: FDA-Public Use
  Company Number: US-ABBOTT-12P-163-0936248-00

PATIENT
  Age: 71 None
  Sex: Female
  Weight: 90.8 kg

DRUGS (12)
  1. HUMIRA 40 MG/0.8 ML PEN [Suspect]
     Indication: PSORIASIS
     Dates: start: 201112
  2. CYMBALTA [Concomitant]
     Indication: DEPRESSION
  3. LEVOTHYROXINE [Concomitant]
     Indication: HYPOTHYROIDISM
  4. COZAAR [Concomitant]
     Indication: HYPERTENSION
  5. NEXIUM [Concomitant]
     Indication: GASTROOESOPHAGEAL REFLUX DISEASE
  6. TOPROL [Concomitant]
     Indication: HYPERTENSION
  7. MAXIDE [Concomitant]
     Indication: DIURETIC THERAPY
  8. ZOCOR [Concomitant]
     Indication: BLOOD CHOLESTEROL INCREASED
  9. SINGULAIR [Concomitant]
     Indication: HYPERSENSITIVITY
  10. POTASSIUM [Concomitant]
     Indication: BLOOD POTASSIUM DECREASED
  11. FISH OIL [Concomitant]
     Indication: ROUTINE HEALTH MAINTENANCE
  12. VITAMIN D [Concomitant]
     Indication: ROUTINE HEALTH MAINTENANCE

REACTIONS (2)
  - Renal impairment [Not Recovered/Not Resolved]
  - Renal impairment [Not Recovered/Not Resolved]
